FAERS Safety Report 5920181-8 (Version None)
Quarter: 2008Q4

REPORT INFORMATION
  Report Type: 
  Country: None (occurrence: None)
  Receive Date: 20081015
  Receipt Date: 20081015
  Transmission Date: 20090506
  Serious: Yes (Hospitalization)
  Sender: FDA-Public Use
  Company Number: None

PATIENT
  Age: 83 Year
  Sex: Male
  Weight: 68.4 kg

DRUGS (1)
  1. IODIXANOL [Suspect]
     Indication: SCAN WITH CONTRAST
     Dates: start: 20080903, end: 20080903

REACTIONS (1)
  - RENAL FAILURE ACUTE [None]
